FAERS Safety Report 10040789 (Version 1)
Quarter: 2014Q1

REPORT INFORMATION
  Report Type: Spontaneous
  Country: US (occurrence: None)
  Receive Date: 20140326
  Receipt Date: 20140326
  Transmission Date: 20141002
  Serious: Yes (Disabling)
  Sender: FDA-Public Use
  Company Number: None

PATIENT
  Age: 53 Year
  Sex: Female

DRUGS (1)
  1. DULOXETINE CAP 60MG CITRON PHA [Suspect]
     Indication: DEPRESSION
     Dosage: 1 PILL, ONCE DAILY, TAKEN BY MOUTH, ABOUT 3 WEEKS
     Route: 048

REACTIONS (7)
  - Pain [None]
  - Insomnia [None]
  - Thinking abnormal [None]
  - Suicidal ideation [None]
  - Withdrawal syndrome [None]
  - Agitation [None]
  - Tearfulness [None]
